FAERS Safety Report 13500294 (Version 1)
Quarter: 2017Q2

REPORT INFORMATION
  Report Type: Spontaneous
  Country: DK (occurrence: DK)
  Receive Date: 20170501
  Receipt Date: 20170501
  Transmission Date: 20170830
  Serious: Yes (Disabling, Other)
  Sender: FDA-Public Use
  Company Number: DK-MYLANLABS-2017M1026176

PATIENT

DRUGS (1)
  1. BRUFEN RETARD 800MG PROLONGED RELEASE TABLETS [Suspect]
     Active Substance: IBUPROFEN
     Indication: ARTHRALGIA
     Dosage: DOSIS: VED BEHOV, 1-2 PR. DAG.
     Route: 048

REACTIONS (6)
  - Renal transplant [Recovered/Resolved]
  - Focal segmental glomerulosclerosis [Not Recovered/Not Resolved]
  - Depression [Recovered/Resolved]
  - Blood creatinine increased [Unknown]
  - Nephritis [Unknown]
  - Fatigue [Unknown]

NARRATIVE: CASE EVENT DATE: 20170331
